FAERS Safety Report 5526944-5 (Version None)
Quarter: 2007Q4

REPORT INFORMATION
  Report Type: 
  Country: None (occurrence: None)
  Receive Date: 20071127
  Receipt Date: 20071115
  Transmission Date: 20080405
  Serious: Yes (Other)
  Sender: FDA-Public Use
  Company Number: US-PFIZER INC-2007098010

PATIENT
  Sex: Female
  Weight: 56.2 kg

DRUGS (8)
  1. CHANTIX [Suspect]
     Indication: EX-SMOKER
     Dates: start: 20071113, end: 20071115
  2. PRILOSEC [Concomitant]
  3. CYMBALTA [Concomitant]
  4. SINGULAIR [Concomitant]
  5. ZYRTEC [Concomitant]
  6. ENALAPRIL MALEATE [Concomitant]
  7. PRAVASTATIN [Concomitant]
  8. VITAMINS [Concomitant]

REACTIONS (2)
  - DEHYDRATION [None]
  - VOMITING [None]
